FAERS Safety Report 6049553-0 (Version None)
Quarter: 2009Q1

REPORT INFORMATION
  Report Type: 
  Country: None (occurrence: None)
  Receive Date: 20090123
  Receipt Date: 20090112
  Transmission Date: 20090719
  Serious: Yes (Hospitalization, Other)
  Sender: FDA-Public Use
  Company Number: FR-PFIZER INC-2008093621

PATIENT

DRUGS (2)
  1. DOSTINEX [Suspect]
     Indication: PITUITARY TUMOUR BENIGN
     Dosage: UNK
     Dates: start: 20050101, end: 20081103
  2. HYDROCORTISONE [Concomitant]

REACTIONS (1)
  - COLITIS ISCHAEMIC [None]
